FAERS Safety Report 4525068-3 (Version None)
Quarter: 2004Q4

REPORT INFORMATION
  Report Type: 
  Country: None (occurrence: None)
  Receive Date: 20041116
  Receipt Date: 20040907
  Transmission Date: 20050328
  Serious: No
  Sender: FDA-Public Use
  Company Number: S04-USA-06051-01

PATIENT
  Age: 66 Year
  Sex: Male

DRUGS (7)
  1. NAMENDA [Suspect]
     Indication: DEMENTIA
     Dosage: 10 MG QD PO
     Route: 048
     Dates: start: 20040823, end: 20040829
  2. NAMENDA [Suspect]
     Indication: DEMENTIA
     Dosage: 5 MG QD PO
     Route: 048
     Dates: start: 20040816, end: 20040822
  3. NAMENDA [Suspect]
     Indication: DEMENTIA
     Dosage: 15 MG QD PO
     Route: 048
     Dates: start: 20040830, end: 20040906
  4. GLUCOPHAGE [Concomitant]
  5. RISPERDAL [Concomitant]
  6. HYPERTENSION MEDICATION (NOS) [Concomitant]
  7. DEPAKOTE [Concomitant]

REACTIONS (1)
  - CONFUSIONAL STATE [None]
